FAERS Safety Report 9856878 (Version 1)
Quarter: 2014Q1

REPORT INFORMATION
  Report Type: Spontaneous
  Country: DE (occurrence: DE)
  Receive Date: 20140130
  Receipt Date: 20140130
  Transmission Date: 20141002
  Serious: Yes (Other)
  Sender: FDA-Public Use
  Company Number: DE-MYLANLABS-2014S1001550

PATIENT
  Age: 41 Year
  Sex: Male

DRUGS (6)
  1. BORTEZOMIB [Suspect]
     Indication: PLASMABLASTIC LYMPHOMA
     Dosage: 1.3MG/M2 DAYS 1+4
     Route: 042
  2. CYCLOPHOSPHAMIDE [Suspect]
     Indication: PLASMABLASTIC LYMPHOMA
     Route: 065
  3. DOXORUBICIN [Suspect]
     Indication: PLASMABLASTIC LYMPHOMA
     Route: 065
  4. VINCRISTINE [Suspect]
     Indication: PLASMABLASTIC LYMPHOMA
     Route: 065
  5. PREDNISONE [Suspect]
     Indication: PLASMABLASTIC LYMPHOMA
     Route: 065
  6. PREDNISOLONE [Suspect]
     Indication: PLASMABLASTIC LYMPHOMA
     Route: 065

REACTIONS (4)
  - Leukopenia [Unknown]
  - Thrombocytopenia [Unknown]
  - Infection [Unknown]
  - Peripheral sensory neuropathy [Unknown]
